FAERS Safety Report 16103114 (Version 2)
Quarter: 2020Q3

REPORT INFORMATION
  Report Type: Spontaneous
  Country: ES (occurrence: ES)
  Receive Date: 20190322
  Receipt Date: 20200909
  Transmission Date: 20201102
  Serious: Yes (Hospitalization, Other)
  Sender: FDA-Public Use
  Company Number: ES-AUROBINDO-AUR-APL-2017-27735

PATIENT
  Age: 32 Year
  Sex: Male

DRUGS (9)
  1. PLANTAGO OVATA [Suspect]
     Active Substance: HERBALS\PLANTAGO OVATA LEAF
     Indication: POSTOPERATIVE CARE
     Dosage: UNK
     Route: 048
  2. DIMETHICONE. [Suspect]
     Active Substance: DIMETHICONE
     Indication: POSTOPERATIVE CARE
     Dosage: UNK
     Route: 048
  3. HYPERICUM PERFORATUM [Suspect]
     Active Substance: HYPERICUM PERFORATUM WHOLE
     Indication: POSTOPERATIVE CARE
     Dosage: UNK
     Route: 048
  4. PARACETAMOL [Suspect]
     Active Substance: ACETAMINOPHEN
     Indication: POSTOPERATIVE CARE
     Dosage: UNKNOWN
     Route: 048
  5. IBUPROFEN. [Suspect]
     Active Substance: IBUPROFEN
     Indication: POSTOPERATIVE CARE
     Dosage: UNKNOWN
     Route: 048
  6. METOCLOPRAMIDE. [Suspect]
     Active Substance: METOCLOPRAMIDE
     Indication: POSTOPERATIVE CARE
     Dosage: UNK
     Route: 048
  7. OXAZEPAM. [Suspect]
     Active Substance: OXAZEPAM
     Indication: POSTOPERATIVE CARE
     Dosage: UNK
     Route: 048
  8. PASSIFLORA INCARNATA [Suspect]
     Active Substance: HERBALS\HOMEOPATHICS\PASSIFLORA INCARNATA FLOWERING TOP
     Indication: POSTOPERATIVE CARE
     Dosage: UNK
     Route: 048
  9. DIPYRONE [Suspect]
     Active Substance: DIPYRONE
     Indication: POSTOPERATIVE CARE
     Dosage: 650 MILLIGRAM
     Route: 048

REACTIONS (1)
  - Drug reaction with eosinophilia and systemic symptoms [Recovered/Resolved]
